FAERS Safety Report 16046562 (Version 1)
Quarter: 2019Q1

REPORT INFORMATION
  Report Type: Spontaneous
  Country: US (occurrence: US)
  Receive Date: 20190207
  Receipt Date: 20190207
  Transmission Date: 20190418
  Serious: Yes (Hospitalization)
  Sender: FDA-Public Use
  Company Number: None

PATIENT
  Age: 63 Year
  Sex: Male
  Weight: 84 kg

DRUGS (1)
  1. SPIRONOLACTONE. [Suspect]
     Active Substance: SPIRONOLACTONE
     Indication: ENDOCRINE DISORDER
     Route: 048
     Dates: start: 20180706, end: 20190101

REACTIONS (3)
  - Syncope [None]
  - Dizziness [None]
  - Hypotension [None]

NARRATIVE: CASE EVENT DATE: 20181228
